FAERS Safety Report 16706845 (Version 1)
Quarter: 2019Q3

REPORT INFORMATION
  Report Type: Spontaneous
  Country: US (occurrence: US)
  Receive Date: 20190628
  Receipt Date: 20190628
  Transmission Date: 20191004
  Serious: Yes (Other)
  Sender: FDA-Public Use
  Company Number: None

PATIENT
  Age: 53 Year
  Sex: Male
  Weight: 92.99 kg

DRUGS (1)
  1. SILDENAFIL 100MG [Suspect]
     Active Substance: SILDENAFIL

REACTIONS (4)
  - Erythema [None]
  - Diarrhoea [None]
  - Nausea [None]
  - Heart rate increased [None]
